FAERS Safety Report 10163729 (Version 1)
Quarter: 2014Q2

REPORT INFORMATION
  Report Type: Spontaneous
  Country: US (occurrence: US)
  Receive Date: 20140509
  Receipt Date: 20140509
  Transmission Date: 20141212
  Serious: Yes (Other)
  Sender: FDA-Public Use
  Company Number: US-TEVA-480814USA

PATIENT
  Sex: Female

DRUGS (5)
  1. PLAN B [Suspect]
     Indication: POST COITAL CONTRACEPTION
     Route: 048
     Dates: start: 200510, end: 200510
  2. CALCIUM [Concomitant]
     Indication: MINERAL SUPPLEMENTATION
  3. VITAMIN C [Concomitant]
     Indication: VITAMIN SUPPLEMENTATION
  4. VITAMIN D [Concomitant]
     Indication: VITAMIN SUPPLEMENTATION
  5. GUMMY MULTIVITAMIN [Concomitant]
     Indication: VITAMIN SUPPLEMENTATION

REACTIONS (2)
  - Abortion spontaneous [Recovered/Resolved]
  - Pregnancy after post coital contraception [Recovered/Resolved]
